FAERS Safety Report 4607551-5 (Version None)
Quarter: 2005Q1

REPORT INFORMATION
  Report Type: 
  Country: None (occurrence: None)
  Receive Date: 20050314
  Receipt Date: 20041201
  Transmission Date: 20050727
  Serious: Yes (Hospitalization, Other)
  Sender: FDA-Public Use
  Company Number: PHBS2004JP16071

PATIENT
  Age: 30 Year
  Sex: Female

DRUGS (9)
  1. CYCLOSPORINE [Suspect]
     Indication: SYSTEMIC LUPUS ERYTHEMATOSUS
     Route: 065
  2. AZATHIOPRINE [Concomitant]
  3. ADRENOCORTICOTROPHIC HORMONE [Concomitant]
  4. ENDOXAN [Concomitant]
  5. ERYTHROMYCIN [Concomitant]
  6. SANDOSTATIN [Suspect]
     Indication: ABDOMINAL PAIN
  7. PREDNISOLONE [Concomitant]
  8. PLASMAPHERESIS [Concomitant]
  9. KEISHI-KA-SYAKUYAKU-TO [Concomitant]

REACTIONS (3)
  - ANOREXIA [None]
  - PNEUMOCYSTIS JIROVECI PNEUMONIA [None]
  - SEPSIS [None]
